FAERS Safety Report 7245067-0 (Version None)
Quarter: 2011Q1

REPORT INFORMATION
  Report Type: 
  Country: None (occurrence: None)
  Receive Date: 20110118
  Receipt Date: 20110105
  Transmission Date: 20110831
  Serious: Yes (Hospitalization, Other)
  Sender: FDA-Public Use
  Company Number: 024907

PATIENT
  Sex: Female
  Weight: 90.7 kg

DRUGS (13)
  1. VITAMIN B12 NOS [Concomitant]
  2. EFFEXOR [Concomitant]
  3. BONIVA [Concomitant]
  4. CIMZIA [Suspect]
     Indication: CROHN'S DISEASE
     Dosage: (400 MG 1X/4 WEEKS SUBCUTANEOUS)
     Route: 058
     Dates: start: 20100609
  5. ATROPINE W/DIPHENOXYLATE /00034001/ [Concomitant]
  6. PROMETHAZINE HYDROCHLORIDE [Concomitant]
  7. EFFEXOR XR [Concomitant]
  8. PREDNISONE [Concomitant]
  9. METHOTREXATE [Concomitant]
  10. MULTI-VITAMINS [Concomitant]
  11. KEFLEX [Suspect]
     Indication: URINARY TRACT INFECTION
  12. CALCIUM W/VITAMINS NOS [Concomitant]
  13. FOLIC ACID [Concomitant]

REACTIONS (8)
  - DEHYDRATION [None]
  - NAUSEA [None]
  - URINARY TRACT INFECTION [None]
  - CLOSTRIDIUM TEST POSITIVE [None]
  - VOMITING [None]
  - PYREXIA [None]
  - DIARRHOEA [None]
  - RIB FRACTURE [None]
